FAERS Safety Report 8993321 (Version 1)
Quarter: 2013Q1

REPORT INFORMATION
  Report Type: Spontaneous
  Country: US (occurrence: US)
  Receive Date: 20130102
  Receipt Date: 20130102
  Transmission Date: 20140127
  Serious: No
  Sender: FDA-Public Use
  Company Number: US-PFIZER INC-2012331730

PATIENT
  Age: 65 Year
  Sex: Female

DRUGS (1)
  1. VIAGRA [Suspect]
     Indication: PULMONARY HYPERTENSION
     Dosage: 50 MG, 3X/DAY
     Route: 048
     Dates: start: 201212

REACTIONS (3)
  - Blood test abnormal [Unknown]
  - Malaise [Unknown]
  - Off label use [Unknown]
